FAERS Safety Report 5025859-9 (Version None)
Quarter: 2006Q2

REPORT INFORMATION
  Report Type: 
  Country: None (occurrence: None)
  Receive Date: 20060608
  Receipt Date: 20040618
  Transmission Date: 20061013
  Serious: No
  Sender: FDA-Public Use
  Company Number: 2004-06-1211

PATIENT

DRUGS (2)
  1. ETHYOL [Suspect]
     Indication: PROPHYLAXIS
  2. RADIATION THERAPY [Concomitant]

REACTIONS (6)
  - DYSPNOEA [None]
  - PARAESTHESIA ORAL [None]
  - RASH [None]
  - SKIN EXFOLIATION [None]
  - STEVENS-JOHNSON SYNDROME [None]
  - WHEEZING [None]
